FAERS Safety Report 25105919 (Version 1)
Quarter: 2025Q1

REPORT INFORMATION
  Report Type: Spontaneous
  Country: US (occurrence: None)
  Receive Date: 20250320
  Receipt Date: 20250320
  Transmission Date: 20250408
  Serious: Yes (Life-Threatening, Hospitalization)
  Sender: FDA-CTU
  Company Number: None

PATIENT
  Age: 80 Year
  Sex: Male
  Weight: 97 kg

DRUGS (1)
  1. METFORMIN HYDROCHLORIDE [Suspect]
     Active Substance: METFORMIN HYDROCHLORIDE
     Indication: Diabetes mellitus
     Dosage: FREQUENCY : TWICE A DAY;?
     Route: 048
     Dates: end: 20240613

REACTIONS (6)
  - Blood lactic acid increased [None]
  - Asthenia [None]
  - Blood glucose decreased [None]
  - Glomerular filtration rate decreased [None]
  - Sepsis [None]
  - Renal impairment [None]

NARRATIVE: CASE EVENT DATE: 20240613
